FAERS Safety Report 20378607 (Version 1)
Quarter: 2022Q1

REPORT INFORMATION
  Report Type: Spontaneous
  Country: US (occurrence: US)
  Receive Date: 20220126
  Receipt Date: 20220126
  Transmission Date: 20220424
  Serious: Yes (Hospitalization)
  Sender: FDA-Public Use
  Company Number: US-TAKEDA-2022TUS003767

PATIENT
  Sex: Female
  Weight: 48 kg

DRUGS (2)
  1. ENTYVIO [Suspect]
     Active Substance: VEDOLIZUMAB
     Indication: Crohn^s disease
     Dosage: 300 MILLIGRAM
     Route: 042
     Dates: start: 20210927
  2. ENTYVIO [Suspect]
     Active Substance: VEDOLIZUMAB
     Indication: Anal cancer

REACTIONS (1)
  - Hospitalisation [Unknown]
